FAERS Safety Report 5470756-8 (Version None)
Quarter: 2007Q3

REPORT INFORMATION
  Report Type: 
  Country: None (occurrence: None)
  Receive Date: 20070928
  Receipt Date: 20070925
  Transmission Date: 20080115
  Serious: Yes (Death, Life-Threatening, Hospitalization)
  Sender: FDA-Public Use
  Company Number: JP-AVENTIS-200712390JP

PATIENT
  Age: 66 Year
  Sex: Male
  Weight: 48 kg

DRUGS (13)
  1. TAXOTERE [Suspect]
     Indication: NON-SMALL CELL LUNG CANCER STAGE IV
     Route: 041
     Dates: start: 20070801, end: 20070801
  2. VANDETANIB [Suspect]
     Indication: NON-SMALL CELL LUNG CANCER STAGE IV
     Route: 048
     Dates: start: 20070801, end: 20070805
  3. MOBIC [Concomitant]
     Indication: PAIN
     Route: 048
  4. OXYCONTIN [Concomitant]
     Indication: PAIN
     Route: 048
  5. LANSOPRAZOLE [Concomitant]
     Indication: GASTRITIS PROPHYLAXIS
     Route: 048
  6. RINDERON                           /00008501/ [Concomitant]
     Indication: ANOREXIA
     Route: 048
  7. PURSENNID                          /00571901/ [Concomitant]
     Indication: CONSTIPATION
     Route: 048
  8. MAGLAX [Concomitant]
     Indication: CONSTIPATION
     Route: 048
  9. MUCOSTA [Concomitant]
     Indication: GASTRITIS PROPHYLAXIS
     Route: 048
  10. TS-1 [Concomitant]
     Indication: NON-SMALL CELL LUNG CANCER STAGE IV
     Dates: start: 20070503, end: 20070604
  11. CARBOPLATIN [Concomitant]
     Indication: NON-SMALL CELL LUNG CANCER STAGE IV
     Dates: start: 20070503, end: 20070604
  12. RADIOTHERAPY [Concomitant]
     Indication: NON-SMALL CELL LUNG CANCER STAGE IV
     Dosage: DOSE: 30GY/TOTAL
     Dates: start: 20070509, end: 20070522
  13. RADIOTHERAPY [Concomitant]
     Dosage: DOSE: 30GY/TOTAL
     Dates: start: 20070522, end: 20070604

REACTIONS (1)
  - INTERSTITIAL LUNG DISEASE [None]
